FAERS Safety Report 4643033-2 (Version None)
Quarter: 2005Q2

REPORT INFORMATION
  Report Type: 
  Country: None (occurrence: None)
  Receive Date: 20050421
  Receipt Date: 20050411
  Transmission Date: 20051028
  Serious: Yes (Hospitalization)
  Sender: FDA-Public Use
  Company Number: 2005057857

PATIENT
  Age: 53 Year
  Sex: Female
  Weight: 62 kg

DRUGS (3)
  1. EPIRUBICIN [Suspect]
     Indication: BREAST CANCER
     Dosage: 100MG/B.S., INTRAVENOUS
     Route: 042
     Dates: start: 20050222
  2. FLUOROURACIL [Concomitant]
  3. CYCLOPHOSPHAMIDE [Concomitant]

REACTIONS (5)
  - ATELECTASIS [None]
  - EXTRAVASATION [None]
  - INCORRECT ROUTE OF DRUG ADMINISTRATION [None]
  - MEDICAL DEVICE COMPLICATION [None]
  - PLEURAL EFFUSION [None]
